FAERS Safety Report 4398250-6 (Version None)
Quarter: 2004Q3

REPORT INFORMATION
  Report Type: 
  Country: None (occurrence: None)
  Receive Date: 20040713
  Receipt Date: 20040630
  Transmission Date: 20050211
  Serious: Yes (Hospitalization)
  Sender: FDA-Public Use
  Company Number: K200400972

PATIENT
  Age: 76 Year
  Sex: Male

DRUGS (8)
  1. ALTACE [Suspect]
     Dosage: 2.5 MG, QD, ORAL
     Route: 048
     Dates: start: 20040329, end: 20040501
  2. ATACAND [Suspect]
     Dosage: 1 U, QD,ORAL
     Route: 048
     Dates: end: 20040513
  3. ALDALIX (FUROSEMIDE, SPIRONOLACTONE) CAPSULE, 1U [Suspect]
     Dosage: 1 U, QD,ORAL
     Route: 048
     Dates: end: 20040513
  4. FUROSEMIDE [Concomitant]
  5. LEXOMIL (BROMAZEPAM) [Concomitant]
  6. MAALOX (MAGNESIUM HYDROXIDE, ALUMINIUM HYDROXIDE GEL) [Concomitant]
  7. METFORMIN HCL [Concomitant]
  8. OMEPRAZOLE [Concomitant]

REACTIONS (3)
  - CHEST PAIN [None]
  - DEHYDRATION [None]
  - RENAL FAILURE ACUTE [None]
